FAERS Safety Report 4600938-6 (Version None)
Quarter: 2005Q1

REPORT INFORMATION
  Report Type: 
  Country: None (occurrence: None)
  Receive Date: 20050127
  Receipt Date: 20041025
  Transmission Date: 20050727
  Serious: No
  Sender: FDA-Public Use
  Company Number: USA041082184

PATIENT
  Age: 44 Year
  Sex: Male

DRUGS (1)
  1. STRATTERA [Suspect]
     Indication: ATTENTION DEFICIT/HYPERACTIVITY DISORDER
     Dosage: 16 MG
     Dates: start: 20041008

REACTIONS (3)
  - DEPRESSION [None]
  - PERSONALITY CHANGE [None]
  - SOCIAL AVOIDANT BEHAVIOUR [None]
